FAERS Safety Report 23743685 (Version 3)
Quarter: 2025Q2

REPORT INFORMATION
  Report Type: Spontaneous
  Country: US (occurrence: US)
  Receive Date: 20240415
  Receipt Date: 20250523
  Transmission Date: 20250716
  Serious: Yes (Death, Hospitalization, Disabling, Other)
  Sender: CHATTEM
  Company Number: US-OPELLA-2024OHG012753

PATIENT
  Sex: Female

DRUGS (1)
  1. GOLD BOND ORIGINAL STRENGTH [Suspect]
     Active Substance: MENTHOL
     Indication: Product used for unknown indication
     Route: 065

REACTIONS (4)
  - Sarcomatoid mesothelioma [Fatal]
  - Exposure to chemical pollution [Fatal]
  - Lung neoplasm malignant [Unknown]
  - Asbestosis [Unknown]

NARRATIVE: CASE EVENT DATE: 20230413
